FAERS Safety Report 8666281 (Version 3)
Quarter: 2012Q4

REPORT INFORMATION
  Report Type: 
  Country: US (occurrence: US)
  Receive Date: 20120716
  Receipt Date: 20120912
  Transmission Date: 20130627
  Serious: Yes (Hospitalization, Other)
  Sender: FDA-Public Use
  Company Number: US-ACTELION-A-US2012-68274

PATIENT
  Age: 51 Year
  Sex: Male

DRUGS (2)
  1. TRACLEER [Suspect]
     Indication: PULMONARY ARTERIAL HYPERTENSION
     Dosage: UNK
     Route: 048
  2. ASPIRIN [Concomitant]

REACTIONS (6)
  - Lumbar vertebral fracture [Unknown]
  - Surgery [Unknown]
  - Lower limb fracture [Unknown]
  - Ankle fracture [Unknown]
  - Ankle operation [Unknown]
  - Fall [Unknown]
